FAERS Safety Report 7336524-7 (Version None)
Quarter: 2011Q1

REPORT INFORMATION
  Report Type: 
  Country: None (occurrence: None)
  Receive Date: 20110307
  Receipt Date: 20110221
  Transmission Date: 20110831
  Serious: Yes (Other)
  Sender: FDA-Public Use
  Company Number: US-ACTELION-A-US2011-45591

PATIENT

DRUGS (2)
  1. TRACLEER [Suspect]
     Indication: PULMONARY ARTERIAL HYPERTENSION
     Dosage: UNK
     Route: 048
     Dates: start: 20110219
  2. VIAGRA [Concomitant]

REACTIONS (5)
  - HAEMATEMESIS [None]
  - INSOMNIA [None]
  - HAEMATOCHEZIA [None]
  - NAUSEA [None]
  - MALAISE [None]
